FAERS Safety Report 5924772-X (Version None)
Quarter: 2008Q4

REPORT INFORMATION
  Report Type: 
  Country: None (occurrence: None)
  Receive Date: 20081017
  Receipt Date: 20081009
  Transmission Date: 20090506
  Serious: Yes (Death, Hospitalization)
  Sender: FDA-Public Use
  Company Number: 100551

PATIENT
  Age: 23 Year
  Sex: Female

DRUGS (1)
  1. ACETAMINOPHEN [Suspect]
     Dosage: 50 G / ONCE / ORAL
     Route: 048

REACTIONS (6)
  - ACUTE HEPATIC FAILURE [None]
  - CARDIOTOXICITY [None]
  - DRUG TOXICITY [None]
  - LIVER TRANSPLANT [None]
  - NECROSIS [None]
  - SUBENDOCARDIAL ISCHAEMIA [None]
